FAERS Safety Report 14840252 (Version 2)
Quarter: 2018Q2

REPORT INFORMATION
  Report Type: Report from Study
  Country: FR (occurrence: FR)
  Receive Date: 20180503
  Receipt Date: 20180521
  Transmission Date: 20180711
  Serious: Yes (Hospitalization, Other)
  Sender: FDA-Public Use
  Company Number: FR-BRISTOL-MYERS SQUIBB COMPANY-BMS-2018-038431

PATIENT
  Age: 67 Year
  Sex: Male
  Weight: 64.8 kg

DRUGS (1)
  1. NIVOLUMAB [Suspect]
     Active Substance: NIVOLUMAB
     Indication: SQUAMOUS CELL CARCINOMA OF HEAD AND NECK
     Dosage: 222 MG, UNK
     Route: 042
     Dates: start: 20171218, end: 20180409

REACTIONS (3)
  - General physical health deterioration [Not Recovered/Not Resolved]
  - Malignant neoplasm progression [Unknown]
  - Hyperthyroidism [Unknown]

NARRATIVE: CASE EVENT DATE: 20180424
